FAERS Safety Report 20144349 (Version 1)
Quarter: 2021Q4

REPORT INFORMATION
  Report Type: Spontaneous
  Country: CN (occurrence: CN)
  Receive Date: 20211203
  Receipt Date: 20211203
  Transmission Date: 20220303
  Serious: Yes (Other)
  Sender: FDA-Public Use
  Company Number: CN-BAXTER-2021BAX038126

PATIENT
  Age: 63 Year
  Sex: Female
  Weight: 46.5 kg

DRUGS (2)
  1. CYCLOPHOSPHAMIDE [Suspect]
     Active Substance: CYCLOPHOSPHAMIDE
     Indication: Diffuse large B-cell lymphoma
     Dosage: CYCLOPHOSPHAMIDE 1 G + 0.9% NS 250 ML
     Route: 041
     Dates: start: 20211030, end: 20211030
  2. SODIUM CHLORIDE [Suspect]
     Active Substance: SODIUM CHLORIDE
     Indication: Medication dilution
     Dosage: CYCLOPHOSPHAMIDE 1 G + 0.9% NS 250 ML
     Route: 041
     Dates: start: 20211030, end: 20211030

REACTIONS (1)
  - Agranulocytosis [Recovering/Resolving]

NARRATIVE: CASE EVENT DATE: 20211105
